FAERS Safety Report 4458868-9 (Version None)
Quarter: 2004Q3

REPORT INFORMATION
  Report Type: 
  Country: None (occurrence: None)
  Receive Date: 20040922
  Receipt Date: 20040922
  Transmission Date: 20050211
  Serious: Yes (Other)
  Sender: FDA-Public Use
  Company Number: None

PATIENT
  Sex: Female
  Weight: 131.5431 kg

DRUGS (3)
  1. OXYCODONE HCL [Suspect]
     Indication: BREAST CANCER METASTATIC
     Dosage: 80 MG PO BID
     Route: 048
  2. OXYCODONE HCL [Suspect]
     Indication: FRACTURE
     Dosage: 80 MG PO BID
     Route: 048
  3. OXYCODONE HCL [Suspect]
     Indication: PAIN
     Dosage: 80 MG PO BID
     Route: 048

REACTIONS (2)
  - DRUG EFFECT DECREASED [None]
  - PHARMACEUTICAL PRODUCT COMPLAINT [None]
